FAERS Safety Report 9842170 (Version 1)
Quarter: 2014Q1

REPORT INFORMATION
  Report Type: Spontaneous
  Country: US (occurrence: None)
  Receive Date: 20140123
  Receipt Date: 20140123
  Transmission Date: 20141002
  Serious: Yes (Other)
  Sender: FDA-Public Use
  Company Number: None

PATIENT
  Age: 32 Year
  Sex: Female
  Weight: 45.36 kg

DRUGS (2)
  1. SERTRALINE [Suspect]
     Indication: PANIC DISORDER
     Dosage: 2 PILLS QD ORAL
     Route: 048
  2. SERTRALINE [Suspect]
     Indication: MAJOR DEPRESSION
     Dosage: 2 PILLS QD ORAL
     Route: 048

REACTIONS (3)
  - Anxiety [None]
  - Suicidal ideation [None]
  - Product substitution issue [None]
